FAERS Safety Report 11880501 (Version 2)
Quarter: 2016Q1

REPORT INFORMATION
  Report Type: Report from Study
  Country: CH (occurrence: CH)
  Receive Date: 20151230
  Receipt Date: 20160315
  Transmission Date: 20160526
  Serious: Yes (Other)
  Sender: FDA-Public Use
  Company Number: CH-ABBVIE-15P-151-1526236-00

PATIENT
  Age: 68 Year
  Sex: Female

DRUGS (2)
  1. VIEKIRAX [Suspect]
     Active Substance: OMBITASVIR\PARITAPREVIR\RITONAVIR
     Indication: HEPATITIS C
     Dosage: 50MG/ 12.5MG/ 75MG, IN THE MORNING
     Route: 048
     Dates: start: 20151005, end: 20151111
  2. EXVIERA [Suspect]
     Active Substance: DASABUVIR
     Indication: HEPATITIS C
     Dosage: ONE IN THE MORNING, ONE IN THE EVENING
     Route: 048
     Dates: start: 20151005, end: 20151111

REACTIONS (8)
  - Skin swelling [Recovered/Resolved]
  - Urticaria [Recovered/Resolved]
  - Drug intolerance [Unknown]
  - Dermatitis [Recovered/Resolved]
  - Rash maculo-papular [Recovered/Resolved]
  - Conjunctivitis [Recovered/Resolved]
  - Inflammation [Recovered/Resolved]
  - Pruritus [Recovered/Resolved]

NARRATIVE: CASE EVENT DATE: 20151110
